FAERS Safety Report 4498664-X (Version None)
Quarter: 2004Q4

REPORT INFORMATION
  Report Type: 
  Country: None (occurrence: None)
  Receive Date: 20041111
  Receipt Date: 20041103
  Transmission Date: 20050328
  Serious: Yes (Life-Threatening)
  Sender: FDA-Public Use
  Company Number: US-ABBOTT-04P-163-0279854-00

PATIENT
  Age: 50 Year
  Sex: Female

DRUGS (1)
  1. TARKA [Suspect]
     Indication: BLOOD PRESSURE INCREASED

REACTIONS (2)
  - DRUG INEFFECTIVE [None]
  - UNEVALUABLE EVENT [None]
